FAERS Safety Report 8324788-2 (Version None)
Quarter: 2012Q2

REPORT INFORMATION
  Report Type: 
  Country: None (occurrence: None)
  Receive Date: 20120501
  Receipt Date: 20120425
  Transmission Date: 20120825
  Serious: Yes (Other)
  Sender: FDA-Public Use
  Company Number: PHHY2012MX036449

PATIENT
  Age: 68 Year
  Sex: Female

DRUGS (7)
  1. ZOLEDRONOC ACID [Suspect]
     Dosage: UNK UKN, UNK
     Route: 042
  2. PROLOY [Concomitant]
     Indication: POSTPARTUM HYPOPITUITARISM
     Dosage: 1 DF, UNK
  3. METICORTEN [Concomitant]
     Indication: POSTPARTUM HYPOPITUITARISM
     Dosage: 1 DF, QD
     Dates: start: 19830101
  4. ZOLEDRONOC ACID [Suspect]
     Indication: OSTEOPOROSIS
     Dosage: UNK UKN, UNK
     Route: 042
  5. OMEPRAZOLE [Concomitant]
     Indication: GASTRITIS
     Dosage: 1 DF, QD
     Dates: start: 20111001
  6. ZOLEDRONOC ACID [Suspect]
     Dosage: UNK UKN, UNK
     Route: 042
  7. ZOLEDRONOC ACID [Suspect]
     Dosage: 5 MG /100 ML PER YEAR
     Route: 042
     Dates: start: 20110201

REACTIONS (1)
  - SPINAL FRACTURE [None]
